FAERS Safety Report 9193314 (Version 1)
Quarter: 2013Q1

REPORT INFORMATION
  Report Type: Spontaneous
  Country: US (occurrence: US)
  Receive Date: 20130327
  Receipt Date: 20130327
  Transmission Date: 20140127
  Serious: Yes (Other)
  Sender: FDA-Public Use
  Company Number: US-ASTRAZENECA-2013SE18479

PATIENT
  Age: 52 Year
  Sex: Female

DRUGS (3)
  1. SEROQUEL [Suspect]
     Indication: MAJOR DEPRESSION
     Dosage: 100 MG AT BEDTIME AND THREE TIMES DAILY AS NEEDED
     Route: 048
  2. SEROQUEL [Suspect]
     Indication: BORDERLINE PERSONALITY DISORDER
     Dosage: 100 MG AT BEDTIME AND THREE TIMES DAILY AS NEEDED
     Route: 048
  3. SEROQUEL [Suspect]
     Indication: ANXIETY
     Dosage: 100 MG AT BEDTIME AND THREE TIMES DAILY AS NEEDED
     Route: 048

REACTIONS (2)
  - Breast cancer female [Unknown]
  - Off label use [Unknown]
